FAERS Safety Report 24083209 (Version 2)
Quarter: 2024Q3

REPORT INFORMATION
  Report Type: Report from Study
  Country: US (occurrence: US)
  Receive Date: 20240712
  Receipt Date: 20240826
  Transmission Date: 20241016
  Serious: Yes (Hospitalization)
  Sender: ROCHE
  Company Number: US-ROCHE-10000018442

PATIENT
  Age: 75 Year
  Sex: Female

DRUGS (7)
  1. OCREVUS [Suspect]
     Active Substance: OCRELIZUMAB
     Indication: Multiple sclerosis
     Dosage: FOR 90 DAYS
     Route: 042
     Dates: start: 201912
  2. CALTRATE [Concomitant]
     Active Substance: CALCIUM CARBONATE
  3. ROSUVASTATIN CALCIUM [Concomitant]
     Active Substance: ROSUVASTATIN CALCIUM
  4. COBAMAMIDE [Concomitant]
     Active Substance: COBAMAMIDE
  5. OMEPRAZOLE [Concomitant]
     Active Substance: OMEPRAZOLE
  6. LEVOTHYROXINE [Concomitant]
     Active Substance: LEVOTHYROXINE\LEVOTHYROXINE SODIUM
  7. BACLOFEN [Concomitant]
     Active Substance: BACLOFEN

REACTIONS (11)
  - Gait disturbance [Unknown]
  - Spinal stenosis [Unknown]
  - Sciatica [Unknown]
  - Visual impairment [Unknown]
  - Urinary tract infection [Unknown]
  - Vitamin D deficiency [Unknown]
  - Mobility decreased [Unknown]
  - Arthralgia [Unknown]
  - Asthenia [Unknown]
  - Myalgia [Unknown]
  - Constipation [Unknown]
